FAERS Safety Report 15183009 (Version 1)
Quarter: 2018Q3

REPORT INFORMATION
  Report Type: Spontaneous
  Country: US (occurrence: US)
  Receive Date: 20180625
  Receipt Date: 20180625
  Transmission Date: 20181010
  Serious: Yes (Disabling)
  Sender: FDA-Public Use
  Company Number: None

PATIENT
  Age: 54 Year
  Sex: Female
  Weight: 103.5 kg

DRUGS (5)
  1. VITAMIN D [Concomitant]
     Active Substance: CHOLECALCIFEROL
  2. FLONASE [Suspect]
     Active Substance: FLUTICASONE PROPIONATE
     Indication: HYPERSENSITIVITY
     Dosage: ?          QUANTITY:120 DF DOSAGE FORM;?
     Route: 045
     Dates: start: 20180620, end: 20180625
  3. ADVIL [Concomitant]
     Active Substance: IBUPROFEN
  4. MULTIVITAMIN [Concomitant]
     Active Substance: VITAMINS
  5. EXCEDRIN [Concomitant]
     Active Substance: ACETAMINOPHEN\ASPIRIN\CAFFEINE

REACTIONS (2)
  - Dizziness [None]
  - Condition aggravated [None]

NARRATIVE: CASE EVENT DATE: 20180621
